FAERS Safety Report 4836231-6 (Version None)
Quarter: 2005Q4

REPORT INFORMATION
  Report Type: 
  Country: None (occurrence: None)
  Receive Date: 20051121
  Receipt Date: 20051121
  Transmission Date: 20060501
  Serious: Yes (Hospitalization, Other)
  Sender: FDA-Public Use
  Company Number: None

PATIENT
  Sex: Male
  Weight: 111 kg

DRUGS (2)
  1. ARANESP [Suspect]
     Indication: ANAEMIA
     Dosage: 200 MCG SQ
     Route: 058
     Dates: start: 20050503, end: 20051014
  2. GEMZAR [Concomitant]

REACTIONS (36)
  - ABDOMINAL DISTENSION [None]
  - ACUTE PRERENAL FAILURE [None]
  - ANXIETY [None]
  - ATRIAL FLUTTER [None]
  - BALANCE DISORDER [None]
  - CHRONIC OBSTRUCTIVE PULMONARY DISEASE [None]
  - CONSTIPATION [None]
  - DECUBITUS ULCER [None]
  - DEHYDRATION [None]
  - DEPRESSION [None]
  - DIABETES MELLITUS INADEQUATE CONTROL [None]
  - DYSPHAGIA [None]
  - ENTEROCOCCAL INFECTION [None]
  - EPISTAXIS [None]
  - ERYTHEMA OF EYELID [None]
  - EYE DISORDER [None]
  - FAECALOMA [None]
  - FALL [None]
  - FEELING COLD [None]
  - FLUID OVERLOAD [None]
  - FOOT FRACTURE [None]
  - GAIT DISTURBANCE [None]
  - GENERAL PHYSICAL HEALTH DETERIORATION [None]
  - HYPOTENSION [None]
  - MUSCULAR WEAKNESS [None]
  - NEUTROPENIA [None]
  - PANCYTOPENIA [None]
  - PNEUMONIA STAPHYLOCOCCAL [None]
  - PNEUMONITIS [None]
  - PYREXIA [None]
  - RESPIRATORY FAILURE [None]
  - SEBORRHOEA [None]
  - SPEECH DISORDER [None]
  - STAPHYLOCOCCAL INFECTION [None]
  - TRACHEITIS [None]
  - TRACHEOBRONCHITIS [None]
